FAERS Safety Report 23923358 (Version 1)
Quarter: 2024Q2

REPORT INFORMATION
  Report Type: Report from Study
  Country: US (occurrence: None)
  Receive Date: 20240531
  Receipt Date: 20240531
  Transmission Date: 20240716
  Serious: Yes (Other)
  Sender: FDA-Public Use
  Company Number: 2024A123280

PATIENT
  Sex: Female

DRUGS (1)
  1. SYMBICORT [Suspect]
     Active Substance: BUDESONIDE\FORMOTEROL FUMARATE DIHYDRATE
     Dosage: UNKNOWN UNKNOWN
     Route: 055

REACTIONS (7)
  - Neoplasm malignant [Unknown]
  - Haematological malignancy [Unknown]
  - Follicular lymphoma [Unknown]
  - Lymphadenopathy [Unknown]
  - Bone marrow disorder [Unknown]
  - Malaise [Unknown]
  - Cough [Unknown]
